FAERS Safety Report 15190874 (Version 2)
Quarter: 2018Q3

REPORT INFORMATION
  Report Type: Report from Study
  Country: DE (occurrence: DE)
  Receive Date: 20180724
  Receipt Date: 20180919
  Transmission Date: 20181010
  Serious: Yes (Hospitalization)
  Sender: FDA-Public Use
  Company Number: DE-SAKK-2018SA159781AA

PATIENT
  Sex: Male
  Weight: 80 kg

DRUGS (2)
  1. CABAZITAXEL [Suspect]
     Active Substance: CABAZITAXEL
     Indication: PRODUCT USED FOR UNKNOWN INDICATION
     Dosage: 25 MG/M2, QCY
     Route: 042
     Dates: start: 20180308, end: 20180308
  2. CABAZITAXEL [Suspect]
     Active Substance: CABAZITAXEL
     Dosage: 25 MG/M2
     Route: 042
     Dates: start: 20180328, end: 20180328

REACTIONS (1)
  - Hepatobiliary neoplasm [Unknown]

NARRATIVE: CASE EVENT DATE: 20180417
